FAERS Safety Report 11178935 (Version 2)
Quarter: 2015Q3

REPORT INFORMATION
  Report Type: Spontaneous
  Country: US (occurrence: US)
  Receive Date: 20150610
  Receipt Date: 20150714
  Transmission Date: 20151125
  Serious: Yes (Other)
  Sender: FDA-Public Use
  Company Number: US-MYLANLABS-2015M1018999

PATIENT

DRUGS (7)
  1. LISINOPRIL. [Concomitant]
     Active Substance: LISINOPRIL
     Dosage: UNK
  2. METHOTREXATE [Suspect]
     Active Substance: METHOTREXATE
     Indication: RHEUMATOID ARTHRITIS
     Dosage: 8 DF, UNK
     Dates: start: 1991
  3. XELJANZ [Suspect]
     Active Substance: TOFACITINIB CITRATE
     Dosage: UNK
     Dates: start: 20150527
  4. METHOTREXATE [Suspect]
     Active Substance: METHOTREXATE
     Dosage: 6 TABLETS
  5. MULTIVITAMINS, OTHER COMBINATIONS [Concomitant]
     Dosage: UNK
  6. FOLIC ACID. [Concomitant]
     Active Substance: FOLIC ACID
     Dosage: UNK
  7. HYDROXYCHLOROQUINE [Concomitant]
     Active Substance: HYDROXYCHLOROQUINE
     Dosage: UNK

REACTIONS (3)
  - Condition aggravated [Recovered/Resolved]
  - Arthralgia [Not Recovered/Not Resolved]
  - Haematochezia [Not Recovered/Not Resolved]
